FAERS Safety Report 10847987 (Version 1)
Quarter: 2015Q1

REPORT INFORMATION
  Report Type: Spontaneous
  Country: US (occurrence: US)
  Receive Date: 20150220
  Receipt Date: 20150220
  Transmission Date: 20150721
  Serious: Yes (Other)
  Sender: FDA-Public Use
  Company Number: US-CELGENEUS-163-21880-14032927

PATIENT
  Sex: Male

DRUGS (1)
  1. REVLIMID [Suspect]
     Active Substance: LENALIDOMIDE
     Indication: PLASMA CELL MYELOMA
     Dosage: 25 MILLIGRAM
     Route: 048
     Dates: start: 201402, end: 2014

REACTIONS (6)
  - Full blood count decreased [Unknown]
  - Pharyngitis [Unknown]
  - Dyspnoea [Unknown]
  - Malaise [Unknown]
  - Rash [Unknown]
  - Lung infection [Unknown]

NARRATIVE: CASE EVENT DATE: 2014
